FAERS Safety Report 22002248 (Version 1)
Quarter: 2023Q1

REPORT INFORMATION
  Report Type: Spontaneous
  Country: RU (occurrence: RU)
  Receive Date: 20230217
  Receipt Date: 20230217
  Transmission Date: 20230417
  Serious: Yes (Death, Life-Threatening, Hospitalization)
  Sender: FDA-Public Use
  Company Number: None

PATIENT
  Age: 50 Year
  Sex: Male
  Weight: 70 kg

DRUGS (8)
  1. XARELTO [Suspect]
     Active Substance: RIVAROXABAN
     Indication: Portal vein thrombosis
     Dosage: 20 MG, QD
     Route: 048
     Dates: start: 20221030, end: 20230205
  2. OMEPRAZOLE [Concomitant]
     Active Substance: OMEPRAZOLE
     Indication: Hepatic cirrhosis
     Dosage: 20 MG, QD
     Route: 048
     Dates: start: 20221221, end: 20230205
  3. DUPHALAC [Concomitant]
     Active Substance: LACTULOSE
     Indication: Hepatic cirrhosis
     Dosage: 20 ML, QD
     Route: 048
     Dates: start: 20221221, end: 20230205
  4. METOPROLOL [Concomitant]
     Active Substance: METOPROLOL
     Indication: Hepatic cirrhosis
     Dosage: 6.25 MG, BID
     Route: 048
     Dates: start: 20221221, end: 20230205
  5. MEBEVERINE [Concomitant]
     Active Substance: MEBEVERINE
     Indication: Hepatic cirrhosis
     Dosage: 200 MG, BID
     Route: 048
     Dates: start: 20221221, end: 20230205
  6. SPIRONOLACTONE [Concomitant]
     Active Substance: SPIRONOLACTONE
     Indication: Hepatic cirrhosis
     Dosage: 50 MG, QD
     Route: 048
     Dates: start: 20221221, end: 20230205
  7. ADEMETIONINE [Concomitant]
     Active Substance: ADEMETIONINE
     Indication: Hepatic cirrhosis
  8. ADEMETIONINE [Concomitant]
     Active Substance: ADEMETIONINE
     Indication: Hepatic cirrhosis

REACTIONS (2)
  - Intestinal haemorrhage [Fatal]
  - Coagulopathy [Fatal]

NARRATIVE: CASE EVENT DATE: 20230131
